FAERS Safety Report 6525724-1 (Version None)
Quarter: 2009Q4

REPORT INFORMATION
  Report Type: 
  Country: None (occurrence: None)
  Receive Date: 20091224
  Receipt Date: 20091211
  Transmission Date: 20100525
  Serious: Yes (Life-Threatening)
  Sender: FDA-Public Use
  Company Number: JPI-P-009420

PATIENT
  Age: 17 Year
  Sex: Male

DRUGS (2)
  1. FLUVOXAMINE MALEATE [Suspect]
     Indication: OBSESSIVE-COMPULSIVE DISORDER
     Dosage: (50 MG, 1 IN 1 D), ORAL, STOPPED
     Route: 048
     Dates: start: 20050101
  2. RISPERIDONE [Concomitant]

REACTIONS (9)
  - AKATHISIA [None]
  - DIARRHOEA [None]
  - ECZEMA [None]
  - GASTROINTESTINAL DISORDER [None]
  - HYPERHIDROSIS [None]
  - MUSCLE SPASMS [None]
  - PYREXIA [None]
  - RESPIRATORY ARREST [None]
  - RESTLESSNESS [None]
